FAERS Safety Report 14471381 (Version 1)
Quarter: 2018Q1

REPORT INFORMATION
  Report Type: Spontaneous
  Country: US (occurrence: US)
  Receive Date: 20180131
  Receipt Date: 20180131
  Transmission Date: 20180509
  Serious: Yes (Other)
  Sender: FDA-Public Use
  Company Number: None

PATIENT
  Age: 53 Year
  Sex: Female
  Weight: 47.63 kg

DRUGS (3)
  1. TRANILAST 75MG [Suspect]
     Active Substance: TRANILAST
     Indication: DRUG THERAPY
     Dosage: DATES OF USE - 2 WKS?FREQUENCY - 2X
     Route: 048
  2. UCERIS [Suspect]
     Active Substance: BUDESONIDE
     Indication: COLITIS ULCERATIVE
     Dosage: DATES OF USE - 6 MONTHS?DOSE - 4 ULERIS?FREQUENCY - 1X
     Route: 048
  3. B VITAMINS, VARIOUS [Suspect]
     Active Substance: VITAMIN B
     Indication: DRUG THERAPY
     Dosage: DATES OF USE - 2 MONTHS?DOSE - 3 B VITAMINS?FREQUENCY - 1X
     Route: 048

REACTIONS (1)
  - Reaction to excipient [None]

NARRATIVE: CASE EVENT DATE: 20170303
